FAERS Safety Report 9018906 (Version 1)
Quarter: 2013Q1

REPORT INFORMATION
  Report Type: Spontaneous
  Country: US (occurrence: US)
  Receive Date: 20130118
  Receipt Date: 20130118
  Transmission Date: 20140127
  Serious: Yes (Other)
  Sender: FDA-Public Use
  Company Number: PHHY2013US004322

PATIENT
  Age: 49 Year
  Sex: Male

DRUGS (3)
  1. BUFFERIN [Suspect]
     Indication: PAIN
     Route: 048
  2. ASCRIPTIN BUFFERED ARTHRITISPAIN CAPLETS [Suspect]
     Indication: PAIN
     Route: 048
  3. ASCRIPTIN BUFFERED ARTHRITISPAIN CAPLETS [Suspect]
     Indication: CARDIAC DISORDER

REACTIONS (5)
  - Upper limb fracture [Unknown]
  - Anxiety [Unknown]
  - Abdominal discomfort [Unknown]
  - Arthritis [Unknown]
  - Incorrect drug administration duration [Unknown]
